FAERS Safety Report 8472296-0 (Version None)
Quarter: 2012Q2

REPORT INFORMATION
  Report Type: 
  Country: None (occurrence: None)
  Receive Date: 20120622
  Receipt Date: 20120622
  Transmission Date: 20120825
  Serious: Yes (Hospitalization)
  Sender: FDA-Public Use
  Company Number: None

PATIENT
  Age: 67 Year
  Sex: Male
  Weight: 106.5953 kg

DRUGS (1)
  1. ONE A DAY ONE PILL BAYER HEALTHCARE LLC [Suspect]
     Dosage: ONE DAY PO
     Route: 048
     Dates: start: 20090301, end: 20090305

REACTIONS (3)
  - ARRHYTHMIA [None]
  - TREMOR [None]
  - INSOMNIA [None]
